FAERS Safety Report 6080445-7 (Version None)
Quarter: 2009Q1

REPORT INFORMATION
  Report Type: 
  Country: None (occurrence: None)
  Receive Date: 20090217
  Receipt Date: 20090210
  Transmission Date: 20090719
  Serious: Yes (Other)
  Sender: FDA-Public Use
  Company Number: PHHY2009FR02171

PATIENT
  Sex: Male
  Weight: 72 kg

DRUGS (3)
  1. EXFORGE [Suspect]
     Dosage: 160/5 MG
     Route: 048
  2. LYRICA [Concomitant]
     Indication: OSTEOARTHRITIS
     Dosage: UNK
     Dates: start: 20080101
  3. ACETAMINOPHEN [Concomitant]
     Indication: PAIN

REACTIONS (1)
  - BLOOD ALKALINE PHOSPHATASE INCREASED [None]
